FAERS Safety Report 7138529-8 (Version None)
Quarter: 2010Q4

REPORT INFORMATION
  Report Type: 
  Country: None (occurrence: None)
  Receive Date: 20101206
  Receipt Date: 20101126
  Transmission Date: 20110411
  Serious: Yes (Hospitalization, Other)
  Sender: FDA-Public Use
  Company Number: CA-ABBOTT-10P-028-0688317-00

PATIENT
  Sex: Male

DRUGS (2)
  1. HUMIRA [Suspect]
     Indication: CROHN'S DISEASE
     Dosage: FIRST WEEK
     Route: 058
     Dates: start: 20101109, end: 20101109
  2. METHOTREXATE [Concomitant]
     Indication: PRODUCT USED FOR UNKNOWN INDICATION

REACTIONS (5)
  - FAECAL VOMITING [None]
  - HYPOPHAGIA [None]
  - INTESTINAL OBSTRUCTION [None]
  - PAIN [None]
  - WEIGHT DECREASED [None]
